FAERS Safety Report 25268950 (Version 1)
Quarter: 2025Q2

REPORT INFORMATION
  Report Type: Spontaneous
  Country: US (occurrence: US)
  Receive Date: 20250505
  Receipt Date: 20250505
  Transmission Date: 20250716
  Serious: No
  Sender: MYLAN
  Company Number: US-MYLANLABS-2025M1036755

PATIENT
  Sex: Female

DRUGS (4)
  1. RYZUMVI [Suspect]
     Active Substance: PHENTOLAMINE MESYLATE
     Indication: Product used for unknown indication
  2. RYZUMVI [Suspect]
     Active Substance: PHENTOLAMINE MESYLATE
     Route: 047
  3. RYZUMVI [Suspect]
     Active Substance: PHENTOLAMINE MESYLATE
     Route: 047
  4. RYZUMVI [Suspect]
     Active Substance: PHENTOLAMINE MESYLATE

REACTIONS (2)
  - Mydriasis [Unknown]
  - Ocular hyperaemia [Unknown]
